FAERS Safety Report 5492858-2 (Version None)
Quarter: 2007Q4

REPORT INFORMATION
  Report Type: 
  Country: None (occurrence: None)
  Receive Date: 20071023
  Receipt Date: 20070406
  Transmission Date: 20080405
  Serious: No
  Sender: FDA-Public Use
  Company Number: US-BRISTOL-MYERS SQUIBB COMPANY-13741517

PATIENT
  Age: 48 Year
  Sex: Female
  Weight: 53 kg

DRUGS (2)
  1. BUSPIRONE HCL [Suspect]
  2. AMITRIPTYLINE HCL [Concomitant]

REACTIONS (1)
  - CYSTITIS INTERSTITIAL [None]
